FAERS Safety Report 4941635-7 (Version None)
Quarter: 2006Q1

REPORT INFORMATION
  Report Type: 
  Country: None (occurrence: None)
  Receive Date: 20060308
  Receipt Date: 20060223
  Transmission Date: 20060701
  Serious: Yes (Other)
  Sender: FDA-Public Use
  Company Number: HQWYE013327FEB06

PATIENT
  Age: 48 Year
  Sex: Male

DRUGS (13)
  1. TIGECYCLINE (TIGECYCLINE, INJECTION) [Suspect]
     Indication: PNEUMONIA
     Dosage: 100MG LOADING DOSE THEN 50MG EVERY 12 HOURS
     Route: 042
     Dates: start: 20060215, end: 20060222
  2. OXYGEN [Concomitant]
  3. IPRATROPIUM BROMIDE [Concomitant]
  4. PANTOPRAZOLE [Concomitant]
  5. SALBUTAMOL [Concomitant]
  6. NORADRENALINE (NOREPINEPHRINE) [Concomitant]
  7. DOPAMINE [Concomitant]
  8. MIDAZOLAM HCL [Concomitant]
  9. PROPOFOL [Concomitant]
  10. MORPHINE [Concomitant]
  11. HYDROCORTISONE [Concomitant]
  12. AMIKACIN [Concomitant]
  13. XIGRIS [Concomitant]

REACTIONS (1)
  - CYTOLYTIC HEPATITIS [None]
